FAERS Safety Report 23525401 (Version 1)
Quarter: 2024Q1

REPORT INFORMATION
  Report Type: Spontaneous
  Country: US (occurrence: US)
  Receive Date: 20240215
  Receipt Date: 20240215
  Transmission Date: 20240410
  Serious: No
  Sender: FDA-Public Use
  Company Number: US-HIKMA PHARMACEUTICALS USA INC.-US-H14001-23-01419

PATIENT
  Sex: Female

DRUGS (2)
  1. FLUTICASONE [Suspect]
     Active Substance: FLUTICASONE
     Indication: Hypersensitivity
     Dosage: UNKNOWN
     Route: 045
  2. SODIUM CHLORIDE [Suspect]
     Active Substance: SODIUM CHLORIDE
     Indication: Hypersensitivity
     Dosage: UNKNOWN
     Route: 065

REACTIONS (5)
  - Abdominal discomfort [Unknown]
  - Headache [Unknown]
  - Malaise [Unknown]
  - Drug ineffective for unapproved indication [Unknown]
  - Off label use [Unknown]
